FAERS Safety Report 18627072 (Version 1)
Quarter: 2020Q4

REPORT INFORMATION
  Report Type: Spontaneous
  Country: US (occurrence: US)
  Receive Date: 20201217
  Receipt Date: 20201217
  Transmission Date: 20210114
  Serious: Yes (Other)
  Sender: FDA-Public Use
  Company Number: US-AXELLIA-003587

PATIENT
  Age: 66 Year
  Sex: Male
  Weight: 74.8 kg

DRUGS (1)
  1. VANCOMYCIN [Suspect]
     Active Substance: VANCOMYCIN
     Indication: PROPHYLAXIS
     Dosage: STRENGTH 500 MG?FREQUENCY: ONCE
     Route: 042
     Dates: start: 20200104, end: 20200104

REACTIONS (3)
  - Dyspnoea [Unknown]
  - Abdominal pain [Unknown]
  - Oropharyngeal pain [Unknown]

NARRATIVE: CASE EVENT DATE: 20200104
